FAERS Safety Report 7629030-3 (Version None)
Quarter: 2011Q3

REPORT INFORMATION
  Report Type: 
  Country: None (occurrence: None)
  Receive Date: 20110722
  Receipt Date: 20110713
  Transmission Date: 20111222
  Serious: Yes (Hospitalization)
  Sender: FDA-Public Use
  Company Number: DE-MPIJNJ-2010-04112

PATIENT

DRUGS (3)
  1. VELCADE [Suspect]
     Indication: MULTIPLE MYELOMA
     Dosage: 1.8 MG, UNK
     Route: 042
     Dates: start: 20090330, end: 20090522
  2. PREGABALIN [Concomitant]
     Indication: PAIN
     Dosage: 150 MG, UNK
     Route: 048
     Dates: start: 20090514
  3. AMITRIPTYLINE HCL [Concomitant]
     Indication: PAIN
     Dosage: 25 MG, UNK
     Route: 048
     Dates: start: 20100329

REACTIONS (1)
  - PARESIS [None]
